FAERS Safety Report 8875627 (Version 3)
Quarter: 2013Q1

REPORT INFORMATION
  Report Type: Report from Study
  Country: CA (occurrence: CA)
  Receive Date: 20121030
  Receipt Date: 20130311
  Transmission Date: 20140127
  Serious: Yes (Hospitalization)
  Sender: FDA-Public Use
  Company Number: CA-UCBSA-069734

PATIENT
  Age: 83 None
  Sex: Male

DRUGS (21)
  1. CIMZIA [Suspect]
     Indication: RHEUMATOID ARTHRITIS
     Route: 058
     Dates: start: 201104
  2. CIMZIA [Suspect]
     Indication: RHEUMATOID ARTHRITIS
     Route: 058
     Dates: start: 20120418, end: 20120502
  3. CIMZIA [Suspect]
     Indication: RHEUMATOID ARTHRITIS
     Route: 058
     Dates: start: 20120620, end: 20120620
  4. CIMZIA [Suspect]
     Indication: RHEUMATOID ARTHRITIS
     Route: 058
     Dates: start: 20120704
  5. METHOTREXATE [Concomitant]
     Indication: RHEUMATOID ARTHRITIS
     Route: 048
     Dates: start: 200810
  6. ARAVA [Concomitant]
     Indication: RHEUMATOID ARTHRITIS
     Route: 048
     Dates: start: 201005
  7. SULFASALAZINE [Concomitant]
     Indication: RHEUMATOID ARTHRITIS
     Route: 048
     Dates: start: 199909
  8. PLAQUENIL [Concomitant]
     Indication: RHEUMATOID ARTHRITIS
     Route: 048
     Dates: start: 200202
  9. NAPROXEN [Concomitant]
     Indication: ANALGESIC INTERVENTION SUPPORTIVE THERAPY
     Route: 048
  10. PARIET [Concomitant]
     Indication: PROPHYLAXIS
     Route: 048
  11. FOLIC ACID [Concomitant]
     Indication: SUPPLEMENTATION THERAPY
     Route: 048
     Dates: start: 200810
  12. ASA [Concomitant]
     Indication: PROPHYLAXIS
     Route: 048
  13. DIDROCAL [Concomitant]
     Indication: OSTEOPOROSIS
     Dosage: 400 MG, OD
     Route: 048
  14. NORVASC [Concomitant]
     Indication: HYPERTENSION
     Route: 048
  15. ELROXIN [Concomitant]
     Indication: HYPERTHYROIDISM
     Route: 048
  16. ZOCOR [Concomitant]
     Indication: HYPERLIPIDAEMIA
     Route: 048
  17. EFFEXOR [Concomitant]
     Indication: ANTIDEPRESSANT DRUG LEVEL BELOW THERAPEUTIC
     Route: 048
  18. OXEPAM [Concomitant]
     Indication: SLEEP DISORDER
     Dosage: AT BEDTIME
     Route: 048
  19. VENTOLIN [Concomitant]
     Indication: ASTHMA
     Dosage: 2 PUFFS QID AS NECESSARY
     Route: 055
  20. SPIRIVA [Concomitant]
     Indication: ASTHMA
     Dosage: 2 PUFFS DAILY
     Route: 055
  21. SYMBICORT [Concomitant]
     Indication: ASTHMA
     Dosage: 2 PUFFS TWICE DAILY
     Route: 055

REACTIONS (7)
  - Asthenia [Recovered/Resolved]
  - Nausea [Recovered/Resolved]
  - Confusional state [Recovering/Resolving]
  - Weight decreased [Recovering/Resolving]
  - Vomiting [Recovered/Resolved]
  - Dizziness [Recovered/Resolved]
  - Hyponatraemia [Unknown]
